FAERS Safety Report 25979963 (Version 2)
Quarter: 2025Q4

REPORT INFORMATION
  Report Type: Spontaneous
  Country: EU (occurrence: EU)
  Receive Date: 20251030
  Receipt Date: 20251209
  Transmission Date: 20260117
  Serious: Yes (Death)
  Sender: TEVA
  Company Number: EU-TEVA-VS-3385877

PATIENT
  Age: 79 Year
  Sex: Male

DRUGS (8)
  1. VINCRISTINE [Suspect]
     Active Substance: VINCRISTINE
     Indication: Diffuse large B-cell lymphoma stage IV
     Dosage: RECEIVED A TOTAL OF SIX CYCLES UNDER R-CHOP REGIMEN
     Route: 065
  2. RIFAMPIN [Suspect]
     Active Substance: RIFAMPIN
     Indication: Mycobacterium haemophilum infection
     Route: 065
  3. DOXORUBICIN [Suspect]
     Active Substance: DOXORUBICIN
     Indication: Diffuse large B-cell lymphoma stage IV
     Dosage: RECEIVED A TOTAL OF SIX CYCLES UNDER R-CHOP REGIMEN
     Route: 065
  4. AZITHROMYCIN [Suspect]
     Active Substance: AZITHROMYCIN
     Indication: Mycobacterium haemophilum infection
     Route: 065
  5. RITUXIMAB [Suspect]
     Active Substance: RITUXIMAB
     Indication: Diffuse large B-cell lymphoma stage IV
     Dosage: RECEIVED A TOTAL OF SIX CYCLES UNDER R-CHOP REGIMEN
     Route: 065
  6. CYCLOPHOSPHAMIDE [Suspect]
     Active Substance: CYCLOPHOSPHAMIDE
     Indication: Diffuse large B-cell lymphoma stage IV
     Dosage: RECEIVED A TOTAL OF SIX CYCLES UNDER R-CHOP REGIMEN
     Route: 065
  7. PREDNISOLONE [Suspect]
     Active Substance: PREDNISOLONE
     Indication: Diffuse large B-cell lymphoma stage IV
     Dosage: RECEIVED A TOTAL OF SIX CYCLES UNDER R-CHOP REGIMEN
     Route: 065
  8. ETHAMBUTOL [Suspect]
     Active Substance: ETHAMBUTOL HYDROCHLORIDE
     Indication: Mycobacterium haemophilum infection
     Route: 065

REACTIONS (4)
  - Mycobacterium haemophilum infection [Fatal]
  - Brain oedema [Fatal]
  - Sepsis [Fatal]
  - Drug ineffective [Fatal]
